FAERS Safety Report 21644757 (Version 2)
Quarter: 2022Q4

REPORT INFORMATION
  Report Type: Report from Study
  Country: US (occurrence: US)
  Receive Date: 20221125
  Receipt Date: 20221219
  Transmission Date: 20230112
  Serious: Yes (Other)
  Sender: FDA-Public Use
  Company Number: US-ALLERGAN-2239044US

PATIENT
  Sex: Male
  Weight: 82.553 kg

DRUGS (6)
  1. ATOGEPANT [Suspect]
     Active Substance: ATOGEPANT
     Indication: Headache
     Dosage: 60 MG, QD
     Route: 048
     Dates: start: 202203
  2. AIMOVIG [Concomitant]
     Active Substance: ERENUMAB-AOOE
     Indication: Headache
  3. TOPAMAX [Concomitant]
     Active Substance: TOPIRAMATE
     Indication: Headache
  4. NURTEC ODT [Concomitant]
     Active Substance: RIMEGEPANT SULFATE
     Indication: Headache
  5. NEURONTIN [Concomitant]
     Active Substance: GABAPENTIN
     Indication: Headache
     Dosage: 300 MG
  6. KEPPRA [Concomitant]
     Active Substance: LEVETIRACETAM

REACTIONS (7)
  - Loss of consciousness [Recovered/Resolved]
  - Dizziness [Unknown]
  - Fall [Recovered/Resolved]
  - Dysarthria [Unknown]
  - Nausea [Unknown]
  - Fatigue [Unknown]
  - Therapeutic response decreased [Unknown]

NARRATIVE: CASE EVENT DATE: 20220101
